FAERS Safety Report 5551203-4 (Version None)
Quarter: 2007Q4

REPORT INFORMATION
  Report Type: 
  Country: None (occurrence: None)
  Receive Date: 20071127
  Receipt Date: 20070702
  Transmission Date: 20080405
  Serious: Yes (Other)
  Sender: FDA-Public Use
  Company Number: CHPA2007US07371

PATIENT
  Age: 28 Year
  Sex: Female
  Weight: 91.2 kg

DRUGS (2)
  1. NICOTINE [Suspect]
     Indication: SMOKING CESSATION THERAPY
     Dosage: 21 MG, ONCE/SINGLE, TRANSDERMAL
     Route: 062
     Dates: start: 20070702, end: 20070702
  2. ZOLOFT [Concomitant]

REACTIONS (5)
  - APPLICATION SITE ERYTHEMA [None]
  - APPLICATION SITE URTICARIA [None]
  - APPLICATION SITE WARMTH [None]
  - DRUG EXPOSURE DURING PREGNANCY [None]
  - DRUG HYPERSENSITIVITY [None]
